FAERS Safety Report 6711915-3 (Version None)
Quarter: 2010Q2

REPORT INFORMATION
  Report Type: 
  Country: None (occurrence: None)
  Receive Date: 20100505
  Receipt Date: 20100426
  Transmission Date: 20101027
  Serious: No
  Sender: FDA-Public Use
  Company Number: US-B.I. PHARMACEUTICALS,INC./RIDGEFIELD-2010-BP-04755BP

PATIENT
  Age: 86 Year
  Sex: Female

DRUGS (2)
  1. SPIRIVA [Suspect]
     Indication: CHRONIC OBSTRUCTIVE PULMONARY DISEASE
     Dosage: 18 MCG
     Route: 055
     Dates: start: 20060101
  2. MAXZIDE [Concomitant]
     Indication: OEDEMA PERIPHERAL

REACTIONS (9)
  - CATARACT [None]
  - COUGH [None]
  - DIARRHOEA [None]
  - GASTROOESOPHAGEAL REFLUX DISEASE [None]
  - MACULAR DEGENERATION [None]
  - OROPHARYNGEAL PAIN [None]
  - PHARYNGEAL ERYTHEMA [None]
  - PRODUCTIVE COUGH [None]
  - VOMITING [None]
